APPROVED DRUG PRODUCT: PROVOCHOLINE
Active Ingredient: METHACHOLINE CHLORIDE
Strength: 1600MG/VIAL
Dosage Form/Route: FOR SOLUTION;INHALATION
Application: N019193 | Product #002
Applicant: METHAPHARM INC
Approved: Aug 29, 2016 | RLD: Yes | RS: No | Type: DISCN